FAERS Safety Report 13950234 (Version 1)
Quarter: 2017Q3

REPORT INFORMATION
  Report Type: Spontaneous
  Country: US (occurrence: US)
  Receive Date: 20170908
  Receipt Date: 20170908
  Transmission Date: 20171128
  Serious: No
  Sender: FDA-Public Use
  Company Number: US-ROCHE-1134253

PATIENT
  Age: 83 Year
  Sex: Male
  Weight: 59.47 kg

DRUGS (2)
  1. RITUXAN [Suspect]
     Active Substance: RITUXIMAB
     Indication: LYMPHOPROLIFERATIVE DISORDER
     Route: 065
     Dates: end: 20000807
  2. RITUXAN [Suspect]
     Active Substance: RITUXIMAB
     Indication: OFF LABEL USE

REACTIONS (3)
  - Weight decreased [Unknown]
  - Contusion [Unknown]
  - Dizziness [Unknown]

NARRATIVE: CASE EVENT DATE: 20000814
